FAERS Safety Report 19292749 (Version 1)
Quarter: 2021Q2

REPORT INFORMATION
  Report Type: Spontaneous
  Country: US (occurrence: US)
  Receive Date: 20210524
  Receipt Date: 20210524
  Transmission Date: 20210717
  Serious: No
  Sender: FDA-Public Use
  Company Number: US-SCIEGENPHARMA-2021SCISPO00178

PATIENT

DRUGS (1)
  1. BUPROPION HYDROCHLORIDE. [Suspect]
     Active Substance: BUPROPION HYDROCHLORIDE
     Indication: PRODUCT USED FOR UNKNOWN INDICATION
     Route: 048

REACTIONS (9)
  - Disturbance in attention [Unknown]
  - Product substitution issue [Unknown]
  - Irritability [Unknown]
  - Listless [Unknown]
  - Anger [Unknown]
  - Anxiety [Unknown]
  - Feeling of despair [Unknown]
  - Product supply issue [Unknown]
  - Drug ineffective [Unknown]
